FAERS Safety Report 18066063 (Version 1)
Quarter: 2020Q3

REPORT INFORMATION
  Report Type: Spontaneous
  Country: US (occurrence: US)
  Receive Date: 20200724
  Receipt Date: 20200724
  Transmission Date: 20201103
  Serious: No
  Sender: FDA-Public Use
  Company Number: US-PFIZER INC-2020164130

PATIENT
  Age: 21 Year
  Sex: Male
  Weight: 68.95 kg

DRUGS (1)
  1. NIVESTYM [Suspect]
     Active Substance: FILGRASTIM-AAFI
     Dosage: 300 UG
     Dates: start: 20200405

REACTIONS (5)
  - Product use in unapproved indication [Unknown]
  - Overdose [Unknown]
  - Injection site pain [Unknown]
  - Product quality issue [Unknown]
  - Off label use [Unknown]
